FAERS Safety Report 25528080 (Version 2)
Quarter: 2025Q3

REPORT INFORMATION
  Report Type: Spontaneous
  Country: US (occurrence: US)
  Receive Date: 20250708
  Receipt Date: 20250807
  Transmission Date: 20251020
  Serious: No
  Sender: LUPIN
  Company Number: US-LUPIN PHARMACEUTICALS INC.-2025-05641

PATIENT
  Age: 47 Year
  Weight: 65.76 kg

DRUGS (2)
  1. DULOXETINE HYDROCHLORIDE [Suspect]
     Active Substance: DULOXETINE HYDROCHLORIDE
     Indication: Anxiety disorder
     Dosage: 60 MG, QD (ONE TABLET EVERY DAY)
  2. ALLEGRA [Concomitant]
     Active Substance: FEXOFENADINE HYDROCHLORIDE
     Indication: Hypersensitivity
     Route: 065

REACTIONS (9)
  - Electric shock sensation [Unknown]
  - Vomiting [Unknown]
  - Nausea [Unknown]
  - Vertigo [Unknown]
  - Diarrhoea [Unknown]
  - Dizziness [Unknown]
  - Feeling hot [Unknown]
  - Hyperhidrosis [Unknown]
  - Product quality issue [Unknown]
